FAERS Safety Report 25936176 (Version 1)
Quarter: 2025Q4

REPORT INFORMATION
  Report Type: Spontaneous
  Country: US (occurrence: US)
  Receive Date: 20251017
  Receipt Date: 20251017
  Transmission Date: 20260117
  Serious: No
  Sender: TEVA
  Company Number: US-TEVA-VS-3378225

PATIENT
  Age: 59 Year
  Sex: Male

DRUGS (1)
  1. BUPRENORPHINE [Suspect]
     Active Substance: BUPRENORPHINE
     Indication: Product used for unknown indication
     Dosage: 10 MCG/HR
     Route: 065

REACTIONS (4)
  - Scab [Unknown]
  - Skin graft [Unknown]
  - Pain [Unknown]
  - Therapeutic product effect incomplete [Unknown]
